FAERS Safety Report 6216630 (Version 2)
Quarter: 2013Q1

REPORT INFORMATION
  Report Type: Spontaneous
  Country: US (occurrence: None)
  Receive Date: 20061229
  Receipt Date: 20130122
  Transmission Date: 20140127
  Serious: Yes (Other)
  Sender: FDA-Public Use
  Company Number: CIP06002999

PATIENT
  Age: 78 Year
  Sex: Male

DRUGS (4)
  1. ACTONEL [Suspect]
     Indication: OSTEOPOROSIS
     Dosage: 35 MG ONCE WEEKLY, ORAL
     Route: 048
     Dates: start: 2006
  2. OMEGA 3 (FISH OIL) [Concomitant]
  3. CALCIUM (CALCIUM) [Concomitant]
  4. URSODIL (URSODEOXYCHOLIC ACID) [Concomitant]

REACTIONS (3)
  - Renal cell carcinoma [None]
  - Weight decreased [None]
  - Hepatic cirrhosis [None]
